FAERS Safety Report 12205791 (Version 1)
Quarter: 2016Q1

REPORT INFORMATION
  Report Type: Spontaneous
  Country: CH (occurrence: CH)
  Receive Date: 20160323
  Receipt Date: 20160323
  Transmission Date: 20160526
  Serious: Yes (Hospitalization)
  Sender: FDA-Public Use
  Company Number: CH-PFIZER INC-2016159250

PATIENT
  Age: 59 Year
  Sex: Male

DRUGS (5)
  1. TEGRETOL [Suspect]
     Active Substance: CARBAMAZEPINE
     Indication: EPILEPSY
     Route: 048
     Dates: start: 20151217, end: 20160127
  2. HALDOL [Suspect]
     Active Substance: HALOPERIDOL
     Indication: AGITATION
     Route: 040
     Dates: start: 20151217, end: 20160215
  3. XANAX [Suspect]
     Active Substance: ALPRAZOLAM
     Indication: AGITATION
     Route: 048
     Dates: start: 20160112, end: 20160227
  4. ORFIL LONG RETARD CAP [Suspect]
     Active Substance: VALPROATE SODIUM
     Indication: EPILEPSY
     Route: 048
     Dates: start: 20160107, end: 20160127
  5. TEMESTA EXPIDET [Suspect]
     Active Substance: LORAZEPAM
     Indication: AGITATION
     Route: 048
     Dates: start: 20151217, end: 20160127

REACTIONS (2)
  - Encephalopathy [None]
  - Altered state of consciousness [Recovered/Resolved]

NARRATIVE: CASE EVENT DATE: 20160127
